FAERS Safety Report 4962620-5 (Version None)
Quarter: 2006Q1

REPORT INFORMATION
  Report Type: 
  Country: None (occurrence: None)
  Receive Date: 20060201
  Receipt Date: 20051107
  Transmission Date: 20060701
  Serious: No
  Sender: FDA-Public Use
  Company Number: 2005PV004076

PATIENT
  Age: 48 Year
  Sex: Female
  Weight: 126.5536 kg

DRUGS (7)
  1. BYETTA [Suspect]
     Indication: DIABETES MELLITUS NON-INSULIN-DEPENDENT
     Dosage: 10; 5 MCG; BID; SC
     Route: 058
     Dates: start: 20050801, end: 20050901
  2. BYETTA [Suspect]
     Indication: DIABETES MELLITUS NON-INSULIN-DEPENDENT
     Dosage: 10; 5 MCG; BID; SC
     Route: 058
     Dates: start: 20050901
  3. METFORMIN [Concomitant]
  4. ACTOS [Concomitant]
  5. STARLIX [Concomitant]
  6. CHROMIUM [Concomitant]
  7. MAGNESIUM [Concomitant]

REACTIONS (2)
  - DRUG INEFFECTIVE [None]
  - WEIGHT DECREASED [None]
